FAERS Safety Report 13306252 (Version 1)
Quarter: 2017Q1

REPORT INFORMATION
  Report Type: Spontaneous
  Country: NL (occurrence: NL)
  Receive Date: 20170308
  Receipt Date: 20170308
  Transmission Date: 20170428
  Serious: Yes (Other)
  Sender: FDA-Public Use
  Company Number: NL-MYLANLABS-2017M1014089

PATIENT

DRUGS (4)
  1. ANDROCUR [Suspect]
     Active Substance: CYPROTERONE ACETATE
     Indication: PRODUCT USED FOR UNKNOWN INDICATION
     Route: 065
  2. PROGYNOVA /00045401/ [Suspect]
     Active Substance: ESTRADIOL VALERATE
     Indication: PRODUCT USED FOR UNKNOWN INDICATION
     Route: 065
  3. ANDROCUR [Suspect]
     Active Substance: CYPROTERONE ACETATE
     Route: 065
  4. ESTRADIOL MYLAN [Suspect]
     Active Substance: ESTRADIOL
     Indication: PRODUCT USED FOR UNKNOWN INDICATION
     Dosage: SLOW RELEASE 20MG MENO-IMPLANT
     Route: 065

REACTIONS (1)
  - Meningioma [Recovered/Resolved]
